FAERS Safety Report 8446915-9 (Version None)
Quarter: 2012Q2

REPORT INFORMATION
  Report Type: 
  Country: None (occurrence: None)
  Receive Date: 20120323
  Receipt Date: 20110909
  Transmission Date: 20120825
  Serious: Yes (Hospitalization)
  Sender: FDA-Public Use
  Company Number: 163-21880-11091096

PATIENT
  Age: 84 Year
  Sex: Female

DRUGS (6)
  1. POTASSIUM ACETATE [Concomitant]
  2. DEXAMETHASONE [Concomitant]
  3. LENALIDOMIDE [Suspect]
     Indication: MULTIPLE MYELOMA
     Dosage: 10 MG, X21 CAPS, PO
     Route: 048
     Dates: start: 20110817
  4. FUROSEMIDE [Concomitant]
  5. NEURONTIN [Concomitant]
  6. LORTAB [Concomitant]

REACTIONS (2)
  - EYE INFECTION [None]
  - WOUND INFECTION [None]
